FAERS Safety Report 5090681-4 (Version None)
Quarter: 2006Q3

REPORT INFORMATION
  Report Type: 
  Country: None (occurrence: None)
  Receive Date: 20060823
  Receipt Date: 20060811
  Transmission Date: 20061208
  Serious: Yes (Life-Threatening, Hospitalization)
  Sender: FDA-Public Use
  Company Number: 111954ISR

PATIENT
  Age: 73 Year
  Sex: Female

DRUGS (9)
  1. METFORMIN [Suspect]
     Indication: DIABETES MELLITUS
     Dosage: 2500 MILLIGRAM ORAL
     Route: 048
     Dates: end: 20060705
  2. PERINDOPRIL ERBUMINE [Suspect]
     Dosage: 2 MILLIGRAM ORAL
     Route: 048
     Dates: end: 20060705
  3. ACETYLSALICYLIC ACID [Concomitant]
  4. ATORVASTATIN CALCIUM [Concomitant]
  5. CALCIUM CARBONATE [Concomitant]
  6. DILTIAZEM HCL [Concomitant]
  7. GLICLAZIDE [Concomitant]
  8. ISOSORBIDE MONONITRATE [Concomitant]
  9. DIPYRIDAMOLE [Concomitant]

REACTIONS (4)
  - DEHYDRATION [None]
  - DIARRHOEA [None]
  - RENAL FAILURE ACUTE [None]
  - VOMITING [None]
